FAERS Safety Report 8493740-9 (Version None)
Quarter: 2012Q3

REPORT INFORMATION
  Report Type: 
  Country: None (occurrence: None)
  Receive Date: 20120706
  Receipt Date: 20120627
  Transmission Date: 20120928
  Serious: Yes (Other)
  Sender: FDA-Public Use
  Company Number: CHPA2012JP011191

PATIENT
  Age: 84 Year
  Sex: Male

DRUGS (10)
  1. ROZEREM [Concomitant]
     Dosage: UNK, UNK
  2. MEMANTINE HYDROCHLORIDE [Concomitant]
     Dosage: UNK, UNK
  3. PURSENNID [Suspect]
     Indication: CONSTIPATION
     Dosage: 24 MG DAILY
     Route: 048
     Dates: start: 20120303, end: 20120507
  4. YOKUKAN-SAN [Concomitant]
     Dosage: UNK, UNK
  5. FAMOTIDINE [Concomitant]
     Dosage: UNK, UNK
  6. ASPIRIN [Concomitant]
     Dosage: UNK, UNK
  7. MAGNESIUM OXIDE [Concomitant]
     Dosage: UNK, UNK
  8. PHENYTOIN SODIUM CAP [Concomitant]
     Dosage: UNK, UNK
  9. ALOSENN [Concomitant]
     Dosage: UNK, UNK
  10. SEROQUEL [Concomitant]
     Dosage: UNK, UNK

REACTIONS (1)
  - PHOTOSENSITIVITY REACTION [None]
